FAERS Safety Report 8435991-5 (Version None)
Quarter: 2012Q2

REPORT INFORMATION
  Report Type: 
  Country: None (occurrence: None)
  Receive Date: 20120614
  Receipt Date: 20120607
  Transmission Date: 20120825
  Serious: Yes (Hospitalization, Other)
  Sender: FDA-Public Use
  Company Number: BE-ROCHE-1076947

PATIENT
  Sex: Male
  Weight: 80 kg

DRUGS (9)
  1. CARDIZEM [Concomitant]
  2. MOTILIUM (BELGIUM) [Concomitant]
  3. AVASTIN [Suspect]
     Indication: METASTATIC RENAL CELL CARCINOMA
     Route: 042
     Dates: start: 20090924, end: 20100326
  4. AVASTIN [Suspect]
     Route: 042
     Dates: end: 20100412
  5. ROFERON-A [Suspect]
     Indication: METASTATIC RENAL CELL CARCINOMA
     Dosage: 6 MUI, LAST DOSE ON 24/MAY/2010
     Route: 058
     Dates: start: 20090924, end: 20100524
  6. ESCITALOPRAM OXALATE [Concomitant]
  7. ACETAMINOPHEN [Concomitant]
  8. ZOVIRAX [Concomitant]
  9. OMEPRAZOLE [Concomitant]

REACTIONS (1)
  - TOXICITY TO VARIOUS AGENTS [None]
